FAERS Safety Report 8560778-2 (Version None)
Quarter: 2012Q3

REPORT INFORMATION
  Report Type: 
  Country: None (occurrence: None)
  Receive Date: 20120802
  Receipt Date: 20120730
  Transmission Date: 20120928
  Serious: Yes (Other)
  Sender: FDA-Public Use
  Company Number: US-PFIZER INC-2012105945

PATIENT
  Sex: Female

DRUGS (4)
  1. PREVACID [Concomitant]
     Indication: GASTROOESOPHAGEAL REFLUX DISEASE
     Dosage: UNK
     Dates: start: 20010101, end: 20110101
  2. CHANTIX [Suspect]
     Dosage: UNK
     Dates: start: 20090701, end: 20090801
  3. CHANTIX [Suspect]
     Indication: SMOKING CESSATION THERAPY
     Dosage: UNK
     Dates: start: 20081201, end: 20090201
  4. LUNESTA [Concomitant]
     Indication: INSOMNIA
     Dosage: UNK
     Dates: start: 20000101

REACTIONS (6)
  - ANXIETY [None]
  - ABNORMAL DREAMS [None]
  - DEPRESSION [None]
  - INSOMNIA [None]
  - AGGRESSION [None]
  - SUICIDAL IDEATION [None]
